FAERS Safety Report 25261328 (Version 5)
Quarter: 2025Q3

REPORT INFORMATION
  Report Type: Spontaneous
  Country: US (occurrence: US)
  Receive Date: 20250501
  Receipt Date: 20250703
  Transmission Date: 20251021
  Serious: No
  Sender: BAUSCH AND LOMB
  Company Number: US-BAUSCHBL-2025BNL007209

PATIENT
  Age: 89 Year
  Sex: Female

DRUGS (3)
  1. MIEBO [Suspect]
     Active Substance: PERFLUOROHEXYLOCTANE
     Indication: Dry eye
     Route: 047
     Dates: start: 202504, end: 202504
  2. MIEBO [Suspect]
     Active Substance: PERFLUOROHEXYLOCTANE
     Route: 047
     Dates: start: 20250422
  3. MURO 128 [Suspect]
     Active Substance: SODIUM CHLORIDE
     Indication: Corneal oedema
     Dosage: ADMINISTERING AT BED TIME EACH NIGHT
     Route: 047
     Dates: start: 20250522

REACTIONS (8)
  - Ocular discomfort [Unknown]
  - Visual impairment [Unknown]
  - Sleep disorder [Unknown]
  - Circumstance or information capable of leading to medication error [Unknown]
  - Therapy interrupted [Unknown]
  - Product use complaint [Unknown]
  - Product container issue [Unknown]
  - Product colour issue [Unknown]

NARRATIVE: CASE EVENT DATE: 20250101
